FAERS Safety Report 10778355 (Version 2)
Quarter: 2015Q3

REPORT INFORMATION
  Report Type: Spontaneous
  Country: US (occurrence: US)
  Receive Date: 20150209
  Receipt Date: 20150805
  Transmission Date: 20151125
  Serious: No
  Sender: FDA-Public Use
  Company Number: US-AMGEN-USASP2014095376

PATIENT
  Age: 69 Year
  Sex: Female
  Weight: 49.89 kg

DRUGS (1)
  1. NPLATE [Suspect]
     Active Substance: ROMIPLOSTIM
     Indication: PRODUCT USED FOR UNKNOWN INDICATION
     Dosage: 5 MUG/KG, UNK
     Route: 065
     Dates: start: 20140902

REACTIONS (4)
  - Insomnia [Unknown]
  - Bone pain [Unknown]
  - Spleen disorder [Unknown]
  - Platelet count decreased [Unknown]
